FAERS Safety Report 9300177 (Version 1)
Quarter: 2012Q4

REPORT INFORMATION
  Report Type: Spontaneous
  Country: US (occurrence: None)
  Receive Date: 20121113
  Receipt Date: 20121113
  Transmission Date: 20130627
  Serious: No
  Sender: FDA-Public Use
  Company Number: None

PATIENT
  Age: 24 Year
  Sex: Female
  Weight: 60.33 kg

DRUGS (1)
  1. ZICAM COLD REMEDY PLUS ORAL MIST [Suspect]
     Indication: COLD
     Dosage: Sprayed orally 3- 4 times daily
     Route: 048
     Dates: start: 20121031, end: 20121104

REACTIONS (1)
  - Ageusia [None]
